FAERS Safety Report 23789668 (Version 3)
Quarter: 2024Q2

REPORT INFORMATION
  Report Type: Spontaneous
  Country: IL (occurrence: IL)
  Receive Date: 20240426
  Receipt Date: 20240611
  Transmission Date: 20240716
  Serious: No
  Sender: FDA-Public Use
  Company Number: IL-DUCHESNAY-2024IL000167

PATIENT

DRUGS (1)
  1. BONJESTA [Suspect]
     Active Substance: DOXYLAMINE SUCCINATE\PYRIDOXINE HYDROCHLORIDE
     Indication: Morning sickness
     Dosage: 2 TABLETS PER DAY; WHEN SHE DISCONTINUED BONJESTA, SHE REDUCED THE DOSE GRADUALLY
     Dates: start: 202402, end: 202404

REACTIONS (5)
  - Fatigue [Unknown]
  - Drug effect less than expected [Unknown]
  - Insomnia [Unknown]
  - Nausea [Unknown]
  - Therapy cessation [Unknown]

NARRATIVE: CASE EVENT DATE: 20240101
